FAERS Safety Report 4916410-X (Version None)
Quarter: 2006Q1

REPORT INFORMATION
  Report Type: 
  Country: None (occurrence: None)
  Receive Date: 20060217
  Receipt Date: 20050829
  Transmission Date: 20060701
  Serious: Yes (Other)
  Sender: FDA-Public Use
  Company Number: US-MERCK-0508USA04936

PATIENT
  Age: 47 Year
  Sex: Female
  Weight: 75 kg

DRUGS (7)
  1. HYDROCODONE BITARTRATE [Concomitant]
     Route: 065
  2. NEURONTIN [Concomitant]
     Route: 065
  3. PAXIL [Concomitant]
     Route: 065
  4. LEXAPRO [Concomitant]
     Route: 065
  5. VIOXX [Suspect]
     Indication: INFLAMMATION
     Route: 048
     Dates: start: 20020701, end: 20040101
  6. VIOXX [Suspect]
     Indication: JOINT SWELLING
     Route: 048
     Dates: start: 20020701, end: 20040101
  7. CELEBREX [Concomitant]
     Route: 065

REACTIONS (4)
  - BACK PAIN [None]
  - CEREBROVASCULAR ACCIDENT [None]
  - CHEST PAIN [None]
  - GASTRIC DISORDER [None]
